FAERS Safety Report 6310760-0 (Version None)
Quarter: 2009Q3

REPORT INFORMATION
  Report Type: 
  Country: None (occurrence: None)
  Receive Date: 20090811
  Receipt Date: 20090731
  Transmission Date: 20100115
  Serious: Yes (Other)
  Sender: FDA-Public Use
  Company Number: GXKR2009PK08796

PATIENT
  Age: 43 Year
  Sex: Male

DRUGS (2)
  1. ALPRAZOLAM [Suspect]
     Dosage: 0.5 MG, ONCE IN A WHILE, 2 MG, TID
  2. VALIUM [Suspect]
     Dosage: 10 MG, (QW OR QW2), INTRAVENOUS
     Route: 042

REACTIONS (5)
  - DRUG DEPENDENCE [None]
  - DYSPNOEA [None]
  - INSOMNIA [None]
  - PALPITATIONS [None]
  - RESTLESSNESS [None]
